FAERS Safety Report 4535358-6 (Version None)
Quarter: 2004Q4

REPORT INFORMATION
  Report Type: 
  Country: None (occurrence: None)
  Receive Date: 20041222
  Receipt Date: 20041104
  Transmission Date: 20050328
  Serious: Yes (Life-Threatening, Other)
  Sender: FDA-Public Use
  Company Number: JP-ABBOTT-04P-087-0282402-00

PATIENT
  Sex: Male

DRUGS (10)
  1. SEVORANE LIQUID FOR INHALATION [Suspect]
     Indication: DRUG USE FOR UNKNOWN INDICATION
  2. DILAZEP DIHYDROCHLORIDE [Concomitant]
     Indication: DRUG USE FOR UNKNOWN INDICATION
  3. ISOCORONAL R [Concomitant]
     Indication: DRUG USE FOR UNKNOWN INDICATION
  4. FAMOTIDINE [Concomitant]
     Indication: PREMEDICATION
     Route: 048
     Dates: start: 20001012, end: 20001012
  5. ATROPINE SULFATE [Concomitant]
     Indication: PREMEDICATION
     Route: 048
     Dates: start: 20001012, end: 20001012
  6. ZOPICLONE [Concomitant]
     Indication: PREMEDICATION
     Route: 048
     Dates: start: 20001012, end: 20001012
  7. BUPIVACAINE HCL [Concomitant]
     Indication: ANAESTHESIA
     Route: 050
     Dates: start: 20001012, end: 20001012
  8. MIDAZOLAM HCL [Concomitant]
     Indication: ANAESTHESIA
     Route: 042
     Dates: start: 20001012, end: 20001012
  9. NITROUS OXIDE [Concomitant]
     Indication: ANAESTHESIA
     Route: 055
     Dates: start: 20001012, end: 20001012
  10. OXYGEN [Concomitant]
     Indication: DRUG USE FOR UNKNOWN INDICATION
     Route: 055
     Dates: start: 20001012, end: 20001012

REACTIONS (10)
  - ALANINE AMINOTRANSFERASE INCREASED [None]
  - ARTERIOSPASM CORONARY [None]
  - ASPARTATE AMINOTRANSFERASE INCREASED [None]
  - ATRIOVENTRICULAR BLOCK COMPLETE [None]
  - BLOOD LACTATE DEHYDROGENASE INCREASED [None]
  - CARDIAC ARREST [None]
  - COUGH [None]
  - DYSKINESIA [None]
  - ELECTROCARDIOGRAM ST SEGMENT ELEVATION [None]
  - MYDRIASIS [None]
